FAERS Safety Report 23279080 (Version 1)
Quarter: 2023Q4

REPORT INFORMATION
  Report Type: Other
  Country: None (occurrence: IE)
  Receive Date: 20231209
  Receipt Date: 20231209
  Transmission Date: 20240110
  Serious: Yes (Hospitalization)
  Sender: FDA-Public Use
  Company Number: IE-B.Braun Medical Inc.-2149161

PATIENT
  Age: 85 Year
  Sex: Male

DRUGS (4)
  1. METRONIDAZOLE [Suspect]
     Active Substance: METRONIDAZOLE
     Indication: Clostridium difficile infection
  2. VANCOMYCIN [Suspect]
     Active Substance: VANCOMYCIN
  3. FIDAXOMICIN [Suspect]
     Active Substance: FIDAXOMICIN
  4. FIDAXOMICIN [Suspect]
     Active Substance: FIDAXOMICIN

REACTIONS (1)
  - Drug ineffective [None]
